FAERS Safety Report 18343860 (Version 2)
Quarter: 2020Q4

REPORT INFORMATION
  Report Type: Spontaneous
  Country: DE (occurrence: CH)
  Receive Date: 20201005
  Receipt Date: 20201014
  Transmission Date: 20210114
  Serious: No
  Sender: FDA-Public Use
  Company Number: DE-ASTRAZENECA-2020SF23695

PATIENT
  Age: 72 Year
  Sex: Male

DRUGS (5)
  1. TRAZODONE [Concomitant]
     Active Substance: TRAZODONE HYDROCHLORIDE
     Indication: PRODUCT USED FOR UNKNOWN INDICATION
  2. QUETIAPINE. [Suspect]
     Active Substance: QUETIAPINE
     Indication: DEPRESSION
     Route: 048
  3. DOPA [Concomitant]
     Indication: TREMOR
  4. BENSERAZIDE [Concomitant]
     Active Substance: BENSERAZIDE
     Indication: TREMOR
  5. LITHIOFOR [Suspect]
     Active Substance: LITHIUM SULFATE
     Indication: DEPRESSION
     Route: 048

REACTIONS (1)
  - Weight increased [Recovered/Resolved]
